FAERS Safety Report 8071006-9 (Version None)
Quarter: 2012Q1

REPORT INFORMATION
  Report Type: 
  Country: None (occurrence: None)
  Receive Date: 20120125
  Receipt Date: 20120118
  Transmission Date: 20120608
  Serious: Yes (Hospitalization, Other)
  Sender: FDA-Public Use
  Company Number: FR-B.I. PHARMACEUTICALS,INC./RIDGEFIELD-2012-FF-00071FF

PATIENT
  Sex: Male

DRUGS (1)
  1. PRADAXA [Suspect]
     Route: 048
     Dates: start: 20111019, end: 20111024

REACTIONS (5)
  - SPEECH DISORDER [None]
  - CEREBROVASCULAR ACCIDENT [None]
  - HAEMATURIA [None]
  - THROMBOCYTOPENIA [None]
  - MOTOR DYSFUNCTION [None]
